FAERS Safety Report 6006788-0 (Version None)
Quarter: 2008Q4

REPORT INFORMATION
  Report Type: 
  Country: None (occurrence: None)
  Receive Date: 20081217
  Receipt Date: 20081211
  Transmission Date: 20090506
  Serious: Yes (Death)
  Sender: FDA-Public Use
  Company Number: PH-AVENTIS-200821549GDDC

PATIENT
  Age: 49 Year
  Sex: Female

DRUGS (8)
  1. TAXOTERE [Suspect]
     Indication: BREAST CANCER FEMALE
     Route: 042
     Dates: start: 20071023
  2. ADRIAMYCIN PFS [Suspect]
     Indication: BREAST CANCER FEMALE
     Route: 042
     Dates: start: 20071023
  3. CYCLOPHOSPHAMIDE [Suspect]
     Indication: BREAST CANCER FEMALE
     Route: 042
     Dates: start: 20071023
  4. MOXIFLOXACIN HCL [Concomitant]
  5. BERODUAL [Concomitant]
  6. DEXAMETHASONE [Concomitant]
  7. RABEPRAZOLE SODIUM [Concomitant]
  8. LEVOPRONT [Concomitant]

REACTIONS (1)
  - CARDIAC ARREST [None]
